FAERS Safety Report 6894171-5 (Version None)
Quarter: 2010Q3

REPORT INFORMATION
  Report Type: 
  Country: None (occurrence: None)
  Receive Date: 20100802
  Receipt Date: 20100719
  Transmission Date: 20110219
  Serious: Yes (Other)
  Sender: FDA-Public Use
  Company Number: AU-JNJFOC-20100706713

PATIENT
  Sex: Female

DRUGS (7)
  1. REMICADE [Suspect]
     Indication: ANKYLOSING SPONDYLITIS
     Route: 042
  2. REMICADE [Suspect]
     Dosage: FOUR YEAR BREAK FROM INFLIXIMAB THERAPY
     Route: 042
  3. ATENOLOL [Concomitant]
  4. METHOTREXATE [Concomitant]
  5. FOLIC ACID [Concomitant]
  6. IBUPROFEN TABLETS [Concomitant]
  7. ACETAMINOPHEN AND CODEINE PHOSPHATE [Concomitant]
     Dosage: WHEN NEEDED

REACTIONS (3)
  - DYSPNOEA [None]
  - FLUID RETENTION [None]
  - WRONG TECHNIQUE IN DRUG USAGE PROCESS [None]
